FAERS Safety Report 19625648 (Version 2)
Quarter: 2022Q1

REPORT INFORMATION
  Report Type: Spontaneous
  Country: BE (occurrence: BE)
  Receive Date: 20210729
  Receipt Date: 20220111
  Transmission Date: 20220424
  Serious: Yes (Death, Other)
  Sender: FDA-Public Use
  Company Number: BE-SUN PHARMACEUTICAL INDUSTRIES LTD-2021RR-306053

PATIENT
  Age: 54 Year
  Sex: Male

DRUGS (3)
  1. TEMOZOLOMIDE [Suspect]
     Active Substance: TEMOZOLOMIDE
     Indication: Glioblastoma
     Dosage: 160 MILLIGRAM, DAILY
     Route: 048
  2. TEMOZOLOMIDE [Suspect]
     Active Substance: TEMOZOLOMIDE
     Dosage: 150 MILLIGRAM/SQ. METER, UNK, 5 DAYS/28
     Route: 048
  3. TEMOZOLOMIDE [Suspect]
     Active Substance: TEMOZOLOMIDE
     Dosage: 200 MILLIGRAM/SQ. METER, UNK, 5 DAYS/28
     Route: 048

REACTIONS (3)
  - Disease progression [Fatal]
  - Diabetes insipidus [Recovered/Resolved]
  - Disease recurrence [Recovered/Resolved]
